FAERS Safety Report 9863706 (Version 1)
Quarter: 2014Q1

REPORT INFORMATION
  Report Type: Report from Study
  Country: CO (occurrence: CO)
  Receive Date: 20140203
  Receipt Date: 20140203
  Transmission Date: 20141002
  Serious: Yes (Death)
  Sender: FDA-Public Use
  Company Number: CO-ASTRAZENECA-2014SE07394

PATIENT
  Age: 4328 Week
  Sex: Female

DRUGS (5)
  1. BRILINTA [Suspect]
     Indication: INFARCTION
     Route: 048
     Dates: start: 20131113, end: 20140123
  2. ENALAPRIL [Concomitant]
     Route: 048
  3. ASA [Concomitant]
     Route: 048
  4. METOPROLOL [Concomitant]
     Route: 048
  5. FUROSEMIDE [Concomitant]
     Route: 048

REACTIONS (1)
  - Death [Fatal]
